FAERS Safety Report 15077113 (Version 1)
Quarter: 2018Q2

REPORT INFORMATION
  Report Type: Spontaneous
  Country: US (occurrence: US)
  Receive Date: 20180607
  Receipt Date: 20180607
  Transmission Date: 20180711
  Serious: No
  Sender: FDA-Public Use
  Company Number: None

PATIENT
  Age: 73 Year
  Sex: Female
  Weight: 103.06 kg

DRUGS (1)
  1. APIXABAN [Suspect]
     Active Substance: APIXABAN
     Indication: DEEP VEIN THROMBOSIS
     Route: 048
     Dates: start: 20180430, end: 20180524

REACTIONS (4)
  - Petechiae [None]
  - Drug eruption [None]
  - Cutaneous vasculitis [None]
  - Paraesthesia [None]

NARRATIVE: CASE EVENT DATE: 20180522
